FAERS Safety Report 16365213 (Version 2)
Quarter: 2019Q2

REPORT INFORMATION
  Report Type: Spontaneous
  Country: US (occurrence: US)
  Receive Date: 20190529
  Receipt Date: 20190614
  Transmission Date: 20190711
  Serious: Yes (Other)
  Sender: FDA-Public Use
  Company Number: US-GLAXOSMITHKLINE-US2019AMR095081

PATIENT

DRUGS (1)
  1. VENTOLIN HFA [Suspect]
     Active Substance: ALBUTEROL SULFATE
     Indication: PRODUCT USED FOR UNKNOWN INDICATION
     Dosage: UNK
     Route: 055

REACTIONS (11)
  - Lower respiratory tract infection [Unknown]
  - Cough [Unknown]
  - Chest discomfort [Unknown]
  - Frustration tolerance decreased [Unknown]
  - Wrong technique in product usage process [Unknown]
  - Upper-airway cough syndrome [Recovering/Resolving]
  - Multiple allergies [Unknown]
  - Drug ineffective [Unknown]
  - Incorrect dose administered [Unknown]
  - Wrong technique in device usage process [Unknown]
  - Product dose omission [Unknown]
